FAERS Safety Report 4365188-X (Version None)
Quarter: 2004Q2

REPORT INFORMATION
  Report Type: 
  Country: None (occurrence: None)
  Receive Date: 20040525
  Receipt Date: 20040305
  Transmission Date: 20050107
  Serious: No
  Sender: FDA-Public Use
  Company Number: PHEH2004US02734

PATIENT
  Sex: Female

DRUGS (1)
  1. ZELNORM [Suspect]
     Indication: IRRITABLE BOWEL SYNDROME
     Dosage: UNKNOWN
     Route: 065

REACTIONS (4)
  - ABDOMINAL PAIN [None]
  - DYSGEUSIA [None]
  - STOMACH DISCOMFORT [None]
  - VOMITING [None]
